FAERS Safety Report 8851994 (Version 1)
Quarter: 2012Q4

REPORT INFORMATION
  Report Type: Spontaneous
  Country: US (occurrence: None)
  Receive Date: 20121017
  Receipt Date: 20121017
  Transmission Date: 20130627
  Serious: Yes (Other)
  Sender: FDA-Public Use
  Company Number: FK201203085

PATIENT
  Age: 48 Year
  Sex: Male
  Weight: 72 kg

DRUGS (4)
  1. OXALIPLATIN [Suspect]
     Indication: CHEMOTHERAPY
     Dates: start: 20080305, end: 20081020
  2. FLUOROURACIL [Suspect]
     Indication: CHEMOTHERAPY
  3. LEUCOVORIN CALCIUM [Suspect]
     Indication: CHEMOTHERAPY
  4. IRINOTECAN [Suspect]
     Indication: CHEMOTHERAPY

REACTIONS (8)
  - Nasopharyngitis [None]
  - Decreased appetite [None]
  - Diarrhoea [None]
  - Nasopharyngitis [None]
  - Neuropathy peripheral [None]
  - Renal impairment [None]
  - Sinusitis [None]
  - Vein pain [None]
